FAERS Safety Report 6567576-X (Version None)
Quarter: 2010Q1

REPORT INFORMATION
  Report Type: 
  Country: None (occurrence: None)
  Receive Date: 20100202
  Receipt Date: 20100126
  Transmission Date: 20100710
  Serious: Yes (Other)
  Sender: FDA-Public Use
  Company Number: GB-ABBOTT-10P-167-0622294-00

PATIENT
  Age: 29 Year
  Sex: Female
  Weight: 91.2 kg

DRUGS (8)
  1. REDUCTIL [Suspect]
     Indication: OBESITY
     Dosage: MORNING
     Route: 048
     Dates: start: 20080401, end: 20091204
  2. DOXYCYCLINE HYCLATE [Concomitant]
     Indication: DRUG USE FOR UNKNOWN INDICATION
     Dates: start: 20091214
  3. METHOTREXATE [Concomitant]
     Indication: DRUG USE FOR UNKNOWN INDICATION
  4. CLENIL MODULITE [Concomitant]
     Indication: DRUG USE FOR UNKNOWN INDICATION
     Dates: start: 20081105
  5. VENTOLIN [Concomitant]
     Indication: DRUG USE FOR UNKNOWN INDICATION
     Dates: start: 20081105
  6. PREDNISOLONE [Concomitant]
     Indication: DRUG USE FOR UNKNOWN INDICATION
     Dates: start: 20091123
  7. CODEINE PHOSPHATE [Concomitant]
     Indication: DRUG USE FOR UNKNOWN INDICATION
     Dosage: 1 OR 2 TO BE TAKEN 4 TIMES DAILY AS REQUIRED
     Dates: start: 20091214
  8. NEUTROGENA T/GEL SHAMPOO [Concomitant]
     Indication: DRUG USE FOR UNKNOWN INDICATION

REACTIONS (1)
  - HEPATITIS [None]
